FAERS Safety Report 10164629 (Version 1)
Quarter: 2014Q2

REPORT INFORMATION
  Report Type: Spontaneous
  Country: US (occurrence: US)
  Receive Date: 20140510
  Receipt Date: 20140510
  Transmission Date: 20141212
  Serious: No
  Sender: FDA-Public Use
  Company Number: US-BRISTOL-MYERS SQUIBB COMPANY-20130829

PATIENT
  Age: 55 Year
  Sex: Female
  Weight: 102.04 kg

DRUGS (4)
  1. BYDUREON [Suspect]
  2. METFORMIN HCL [Suspect]
  3. SYNTHROID [Concomitant]
  4. PRAVASTATIN SODIUM [Concomitant]

REACTIONS (2)
  - Blood glucose fluctuation [Unknown]
  - Treatment noncompliance [Unknown]
